FAERS Safety Report 12861900 (Version 2)
Quarter: 2016Q4

REPORT INFORMATION
  Report Type: Spontaneous
  Country: US (occurrence: US)
  Receive Date: 20161019
  Receipt Date: 20161020
  Transmission Date: 20170207
  Serious: No
  Sender: FDA-Public Use
  Company Number: US-TEVA-697494ACC

PATIENT
  Sex: Female
  Weight: 65.83 kg

DRUGS (2)
  1. CITALOPRAM [Concomitant]
     Active Substance: CITALOPRAM HYDROBROMIDE
  2. PARAGARD T 380A [Suspect]
     Active Substance: COPPER
     Indication: CONTRACEPTION
     Dates: start: 20071127, end: 20160623

REACTIONS (3)
  - Embedded device [Not Recovered/Not Resolved]
  - Discomfort [Recovered/Resolved]
  - Device breakage [Not Recovered/Not Resolved]
